FAERS Safety Report 5954088-7 (Version None)
Quarter: 2008Q4

REPORT INFORMATION
  Report Type: 
  Country: None (occurrence: None)
  Receive Date: 20081114
  Receipt Date: 20081106
  Transmission Date: 20090506
  Serious: Yes (Hospitalization)
  Sender: FDA-Public Use
  Company Number: JP-MERCK-0811USA01463

PATIENT
  Age: 81 Year
  Sex: Female
  Weight: 36 kg

DRUGS (7)
  1. FOSAMAX [Suspect]
     Indication: OSTEOPOROSIS
     Route: 048
     Dates: start: 20080915, end: 20081013
  2. ELCITONIN [Suspect]
     Indication: OSTEOPOROSIS
     Route: 030
     Dates: start: 20080915, end: 20081013
  3. LEVOTHYROXINE SODIUM [Suspect]
     Indication: HYPOTHYROIDISM
     Route: 048
     Dates: start: 19750101
  4. CLARITHROMYCIN [Concomitant]
     Indication: PNEUMONIA
     Route: 048
     Dates: start: 20080927, end: 20081006
  5. BUFFERIN [Concomitant]
     Indication: PNEUMONIA
     Route: 048
     Dates: start: 20080927, end: 20081006
  6. VOLTAREN [Concomitant]
     Indication: PNEUMONIA
     Route: 054
     Dates: start: 20080927, end: 20081006
  7. BANAN [Concomitant]
     Indication: PNEUMONIA
     Route: 048
     Dates: start: 20081006, end: 20081014

REACTIONS (1)
  - PNEUMONIA [None]
